FAERS Safety Report 8254522-6 (Version None)
Quarter: 2012Q2

REPORT INFORMATION
  Report Type: 
  Country: None (occurrence: None)
  Receive Date: 20120403
  Receipt Date: 20120326
  Transmission Date: 20120825
  Serious: No
  Sender: FDA-Public Use
  Company Number: US-BIOGENIDEC-2012BI010755

PATIENT
  Age: 41 Year
  Sex: Female

DRUGS (1)
  1. TYSABRI [Suspect]
     Indication: MULTIPLE SCLEROSIS
     Route: 042
     Dates: start: 20120306

REACTIONS (6)
  - VITREOUS FLOATERS [None]
  - DYSURIA [None]
  - BLINDNESS [None]
  - FATIGUE [None]
  - BACTERIAL TEST [None]
  - FLANK PAIN [None]
